FAERS Safety Report 20938010 (Version 1)
Quarter: 2022Q2

REPORT INFORMATION
  Report Type: Report from Study
  Country: CA (occurrence: CA)
  Receive Date: 20220609
  Receipt Date: 20220609
  Transmission Date: 20220721
  Serious: Yes (Hospitalization, Other)
  Sender: FDA-Public Use
  Company Number: None

PATIENT
  Age: 62 Year
  Sex: Female
  Weight: 60 kg

DRUGS (9)
  1. ROSUVASTATIN CALCIUM [Suspect]
     Active Substance: ROSUVASTATIN CALCIUM
     Indication: Dyslipidaemia
     Route: 065
  2. VEDOLIZUMAB [Suspect]
     Active Substance: VEDOLIZUMAB
     Indication: Colitis ulcerative
     Dosage: 1 EVERY 4 WEEKS
     Route: 042
  3. CALCIUM GLUCONATE [Concomitant]
     Active Substance: CALCIUM GLUCONATE
  4. LEVOTHYROXINE SODIUM [Concomitant]
     Active Substance: LEVOTHYROXINE SODIUM
  5. LUMIGAN [Concomitant]
     Active Substance: BIMATOPROST
     Dosage: 1 EVERY 1 DAYS
  6. NADOLOL [Concomitant]
     Active Substance: NADOLOL
  7. PREDNISONE [Concomitant]
     Active Substance: PREDNISONE
  8. SYNTHROID [Concomitant]
     Active Substance: LEVOTHYROXINE SODIUM
  9. VITAMIN D3 [Concomitant]
     Active Substance: CHOLECALCIFEROL
     Dosage: 1 EVERY 1 DAYS

REACTIONS (11)
  - Ascites [Unknown]
  - Chest discomfort [Unknown]
  - Dyslipidaemia [Unknown]
  - Dyspnoea [Unknown]
  - Hepatic cirrhosis [Unknown]
  - Hepatitis acute [Unknown]
  - Hyperplastic cholecystopathy [Unknown]
  - Pleural effusion [Unknown]
  - Splenomegaly [Unknown]
  - Thyroiditis [Unknown]
  - Wheezing [Unknown]
